FAERS Safety Report 6590542-5 (Version None)
Quarter: 2010Q1

REPORT INFORMATION
  Report Type: 
  Country: None (occurrence: None)
  Receive Date: 20100219
  Receipt Date: 20100212
  Transmission Date: 20100710
  Serious: Yes (Other)
  Sender: FDA-Public Use
  Company Number: JP-PFIZER INC-2010013282

PATIENT
  Age: 71 Year
  Sex: Male

DRUGS (2)
  1. ZITHROMAX [Suspect]
     Indication: PERIODONTITIS
     Dosage: 500MG / DAY
     Route: 048
     Dates: start: 20100116, end: 20100117
  2. BANAN [Suspect]
     Route: 048

REACTIONS (2)
  - FAECES DISCOLOURED [None]
  - GASTRIC ULCER [None]
